FAERS Safety Report 14325890 (Version 1)
Quarter: 2017Q4

REPORT INFORMATION
  Report Type: Spontaneous
  Country: FR (occurrence: FR)
  Receive Date: 20171226
  Receipt Date: 20171226
  Transmission Date: 20180321
  Serious: Yes (Other)
  Sender: FDA-Public Use
  Company Number: FR-MYLANLABS-2017M1082119

PATIENT
  Age: 48 Year
  Sex: Female
  Weight: 68 kg

DRUGS (5)
  1. BUPIVACAINE MYLAN [Suspect]
     Active Substance: BUPIVACAINE
     Indication: SPINAL ANAESTHESIA
     Dosage: UNK
     Route: 024
  2. LEVOTHYROX 150 MICROGRAMMES, COMPRIM? S?CABLE [Concomitant]
     Indication: PRODUCT USED FOR UNKNOWN INDICATION
  3. CALCIDOSE [Concomitant]
     Active Substance: CALCIUM CARBONATE
     Indication: PRODUCT USED FOR UNKNOWN INDICATION
  4. ZYMA D2 [Concomitant]
     Indication: PRODUCT USED FOR UNKNOWN INDICATION
     Dosage: UNK
  5. UN-ALFA [Concomitant]
     Active Substance: ALFACALCIDOL
     Indication: PRODUCT USED FOR UNKNOWN INDICATION

REACTIONS (2)
  - Drug ineffective [Recovered/Resolved]
  - Anaesthetic complication [Recovered/Resolved]

NARRATIVE: CASE EVENT DATE: 20171011
